FAERS Safety Report 24786043 (Version 1)
Quarter: 2024Q4

REPORT INFORMATION
  Report Type: Spontaneous
  Country: US (occurrence: US)
  Receive Date: 20241229
  Receipt Date: 20241229
  Transmission Date: 20250115
  Serious: No
  Sender: SANOFI AVENTIS
  Company Number: US-SA-2024SA381585

PATIENT
  Age: 65 Year
  Sex: Male

DRUGS (1)
  1. LOVENOX [Suspect]
     Active Substance: ENOXAPARIN SODIUM
     Indication: Peripheral arterial occlusive disease
     Dosage: 160 MG, QD
     Route: 058

REACTIONS (1)
  - Off label use [Unknown]
